FAERS Safety Report 14605084 (Version 1)
Quarter: 2018Q1

REPORT INFORMATION
  Report Type: Spontaneous
  Country: US (occurrence: US)
  Receive Date: 20180306
  Receipt Date: 20180306
  Transmission Date: 20180509
  Serious: Yes (Disabling)
  Sender: FDA-Public Use
  Company Number: None

PATIENT
  Age: 63 Year
  Sex: Female
  Weight: 45 kg

DRUGS (5)
  1. MULTI-VITAMIN/MINERAL [Concomitant]
  2. ANTI-DEPRESSANTS [Concomitant]
     Active Substance: UNSPECIFIED INGREDIENT
  3. PROGESTERONE. [Concomitant]
     Active Substance: PROGESTERONE
  4. SLEEPING AIDS [Concomitant]
  5. ESTRADIOL TRANSDERMAL SYSTEM [Suspect]
     Active Substance: ESTRADIOL
     Indication: NIGHT SWEATS
     Dosage: ?          QUANTITY:4 PATCH(ES);?
     Route: 062

REACTIONS (3)
  - Sleep disorder [None]
  - Drug ineffective [None]
  - Therapy change [None]

NARRATIVE: CASE EVENT DATE: 20180228
